FAERS Safety Report 10047195 (Version 2)
Quarter: 2014Q1

REPORT INFORMATION
  Report Type: Spontaneous
  Country: US (occurrence: US)
  Receive Date: 20140331
  Receipt Date: 20140331
  Transmission Date: 20141002
  Serious: No
  Sender: FDA-Public Use
  Company Number: US-MYLANLABS-2013S1018424

PATIENT
  Age: 55 Year
  Sex: Female
  Weight: 54.43 kg

DRUGS (8)
  1. FENTANYL TRANSDERMAL SYSTEM [Suspect]
     Indication: BACK PAIN
     Dosage: CHANGED Q48H
     Route: 062
     Dates: start: 20130808
  2. FENTANYL TRANSDERMAL SYSTEM [Suspect]
     Indication: BACK PAIN
     Dosage: CHANGED Q48H
     Route: 062
     Dates: start: 20130808
  3. TOPAMAX [Concomitant]
     Indication: HEADACHE
  4. XANAX [Concomitant]
     Indication: ANXIETY
  5. LAMICTAL [Concomitant]
     Indication: BIPOLAR DISORDER
  6. FIORICET [Concomitant]
     Indication: HEADACHE
  7. REMERON [Concomitant]
     Indication: DEPRESSION
  8. ZOLOFT [Concomitant]
     Indication: DEPRESSION

REACTIONS (2)
  - Palpitations [Not Recovered/Not Resolved]
  - Hot flush [Not Recovered/Not Resolved]
